FAERS Safety Report 7606674-6 (Version None)
Quarter: 2011Q3

REPORT INFORMATION
  Report Type: 
  Country: None (occurrence: None)
  Receive Date: 20110713
  Receipt Date: 20110707
  Transmission Date: 20111222
  Serious: Yes (Life-Threatening)
  Sender: FDA-Public Use
  Company Number: JP-ROCHE-750285

PATIENT
  Age: 63 Year
  Sex: Male
  Weight: 52 kg

DRUGS (31)
  1. TOCILIZUMAB [Suspect]
     Route: 041
     Dates: start: 20090610, end: 20090610
  2. TOCILIZUMAB [Suspect]
     Route: 041
     Dates: start: 20090930, end: 20090930
  3. PREDNISOLONE [Concomitant]
     Route: 048
     Dates: start: 20091125, end: 20100218
  4. KETOPROFEN [Concomitant]
     Dosage: ONE PIECE
     Route: 062
  5. FAMOTIDINE [Concomitant]
     Dosage: 20210 MG
     Route: 048
     Dates: end: 20101120
  6. BREDININ [Concomitant]
     Route: 048
     Dates: start: 20100611, end: 20100903
  7. FELBINAC [Concomitant]
     Dosage: AT THE RIGHT TIME
     Route: 062
  8. TOCILIZUMAB [Suspect]
     Route: 041
     Dates: start: 20090708, end: 20090708
  9. PREDNISOLONE [Concomitant]
     Route: 048
     Dates: start: 20100611, end: 20100708
  10. METHOTREXATE [Concomitant]
     Route: 048
  11. PROGRAF [Concomitant]
     Route: 048
     Dates: start: 20101224
  12. KETOPROFEN [Concomitant]
     Dosage: FORM: TAPE, ONE PIECE
     Route: 062
     Dates: end: 20101120
  13. FELBINAC [Concomitant]
     Dosage: AT THE RIGHT TIME, FORM: TAPE
     Route: 062
  14. TOCILIZUMAB [Suspect]
     Route: 041
     Dates: start: 20090902, end: 20090902
  15. TOCILIZUMAB [Suspect]
     Route: 041
     Dates: start: 20091021, end: 20101029
  16. PREDNISOLONE [Concomitant]
     Route: 048
     Dates: start: 20100709, end: 20100805
  17. LOCOID [Concomitant]
     Dosage: DOSAGE IS UNCERTAIN. FORM: OINTMENT AND CREAM
     Route: 003
     Dates: end: 20101120
  18. PROGRAF [Concomitant]
     Dosage: DRUG: PROGRAF(TACROLIMUS HYDRATE)
     Route: 048
     Dates: end: 20101120
  19. TOCILIZUMAB [Suspect]
     Indication: RHEUMATOID ARTHRITIS
     Route: 041
     Dates: start: 20090516, end: 20090516
  20. TOCILIZUMAB [Suspect]
     Route: 041
     Dates: start: 20090812, end: 20090812
  21. PREDNISOLONE [Concomitant]
     Route: 048
     Dates: start: 20100219, end: 20100610
  22. METHOTREXATE [Concomitant]
     Route: 048
     Dates: end: 20101120
  23. ACTONEL [Concomitant]
     Route: 048
     Dates: start: 20091125, end: 20101120
  24. FOSAMAX [Concomitant]
     Dosage: REPORTED AS FOSAMAC
     Route: 048
     Dates: start: 20090902, end: 20091124
  25. PREDNISOLONE [Concomitant]
     Dosage: STOP DATE: 2010
     Route: 048
     Dates: start: 20100806
  26. PREDNISOLONE [Concomitant]
     Route: 048
     Dates: start: 20100101, end: 20101120
  27. CYTOTEC [Concomitant]
     Route: 048
     Dates: end: 20101120
  28. VOLTAREN [Concomitant]
     Route: 048
  29. FOLIC ACID [Concomitant]
     Route: 048
     Dates: end: 20101120
  30. FELBINAC [Concomitant]
     Dosage: AT THE RIGHT TIME, FORM: TAPE
     Route: 062
     Dates: end: 20101120
  31. PREDNISOLONE [Concomitant]
     Indication: RHEUMATOID ARTHRITIS
     Route: 048
     Dates: start: 20090501, end: 20091124

REACTIONS (4)
  - C-REACTIVE PROTEIN INCREASED [None]
  - LARGE INTESTINE PERFORATION [None]
  - ANAEMIA [None]
  - RHEUMATOID ARTHRITIS [None]
